FAERS Safety Report 9325461 (Version 1)
Quarter: 2013Q2

REPORT INFORMATION
  Report Type: Spontaneous
  Country: US (occurrence: None)
  Receive Date: 20130531
  Receipt Date: 20130531
  Transmission Date: 20140414
  Serious: Yes (Hospitalization)
  Sender: FDA-Public Use
  Company Number: None

PATIENT
  Age: 84 Year
  Sex: Male

DRUGS (1)
  1. WARFARIN 5 MG [Suspect]
     Indication: ATRIAL FIBRILLATION
     Dosage: 5 MG QDAY PO?UNKNOWN, BUT CHRONIC USE
     Route: 048

REACTIONS (4)
  - Haemorrhagic stroke [None]
  - Brain stem haemorrhage [None]
  - Hydrocephalus [None]
  - Acute respiratory failure [None]
